FAERS Safety Report 14609437 (Version 11)
Quarter: 2018Q4

REPORT INFORMATION
  Report Type: Report from Study
  Country: None (occurrence: DE)
  Receive Date: 20180307
  Receipt Date: 20181026
  Transmission Date: 20190204
  Serious: Yes (Death, Hospitalization, Disabling, Other)
  Sender: FDA-Public Use
  Company Number: DE-ABBVIE-18K-062-2268313-00

PATIENT
  Age: 79 Year
  Sex: Male
  Weight: 67.6 kg

DRUGS (35)
  1. DUODOPA [Suspect]
     Active Substance: CARBIDOPA\LEVODOPA
     Dosage: CRD 2.5 ML/H
     Route: 050
     Dates: start: 2018, end: 2018
  2. DUODOPA [Suspect]
     Active Substance: CARBIDOPA\LEVODOPA
     Dosage: MD 6 ML CRD 3.5 ML/H ED 1.5 ML
     Route: 050
     Dates: start: 2018
  3. QUETIAPIN [Concomitant]
     Active Substance: QUETIAPINE
     Dates: start: 2018
  4. SIMVASTATIN. [Concomitant]
     Active Substance: SIMVASTATIN
     Indication: PRODUCT USED FOR UNKNOWN INDICATION
  5. NOVALGIN (METAMIZOLE SODIUM) [Concomitant]
     Active Substance: METAMIZOLE SODIUM
     Indication: BACK PAIN
     Dates: start: 2018
  6. VITAMINE B COMPLEX [Concomitant]
     Active Substance: CYANOCOBALAMIN\PYRIDOXINE HYDROCHLORIDE\RIBOFLAVIN\SODIUM PANTOTHENATE\THIAMINE HYDROCHLORIDE\VITAMIN B COMPLEX
     Indication: PRODUCT USED FOR UNKNOWN INDICATION
  7. SERTRALINE [Concomitant]
     Active Substance: SERTRALINE HYDROCHLORIDE
     Indication: PRODUCT USED FOR UNKNOWN INDICATION
  8. BISOPROLOL [Concomitant]
     Active Substance: BISOPROLOL
     Indication: PRODUCT USED FOR UNKNOWN INDICATION
  9. TORASEMID [Concomitant]
     Active Substance: TORSEMIDE
     Indication: PRODUCT USED FOR UNKNOWN INDICATION
  10. NACL [Concomitant]
     Active Substance: SODIUM CHLORIDE
     Indication: PRODUCT USED FOR UNKNOWN INDICATION
  11. METAMIZOL [Concomitant]
     Active Substance: METAMIZOLE SODIUM
     Indication: PRODUCT USED FOR UNKNOWN INDICATION
  12. METHIONIN [Concomitant]
     Active Substance: METHIONINE
     Indication: PRODUCT USED FOR UNKNOWN INDICATION
  13. CLOPIDOGREL [Concomitant]
     Active Substance: CLOPIDOGREL BISULFATE
     Indication: PRODUCT USED FOR UNKNOWN INDICATION
  14. TOREM [Concomitant]
     Active Substance: TORSEMIDE
     Dosage: MORNING: 20 MG; NOON: 10 MG
  15. NEXIUM [Concomitant]
     Active Substance: ESOMEPRAZOLE MAGNESIUM
     Indication: PRODUCT USED FOR UNKNOWN INDICATION
     Dates: start: 2018
  16. DUODOPA [Suspect]
     Active Substance: CARBIDOPA\LEVODOPA
     Dosage: CRD 2.0 ML/H
     Route: 050
     Dates: start: 20180220, end: 2018
  17. DUODOPA [Suspect]
     Active Substance: CARBIDOPA\LEVODOPA
     Dosage: CRD 3.0 ML/H
     Route: 050
     Dates: start: 2018, end: 2018
  18. L-THYROXIN [Concomitant]
     Active Substance: LEVOTHYROXINE SODIUM
     Indication: PRODUCT USED FOR UNKNOWN INDICATION
  19. QUETIAPIN [Concomitant]
     Active Substance: QUETIAPINE
     Indication: PRODUCT USED FOR UNKNOWN INDICATION
     Dosage: MORNING: 12.5 MG; EVENING: 25 MG
     Dates: end: 2018
  20. NEUPRO [Concomitant]
     Active Substance: ROTIGOTINE
     Indication: PRODUCT USED FOR UNKNOWN INDICATION
     Dates: start: 2018
  21. TOREM [Concomitant]
     Active Substance: TORSEMIDE
     Indication: PRODUCT USED FOR UNKNOWN INDICATION
  22. DEKRISTOL [Concomitant]
     Active Substance: CHOLECALCIFEROL
     Indication: PRODUCT USED FOR UNKNOWN INDICATION
  23. NORSPAN [Concomitant]
     Active Substance: BUPRENORPHINE
     Indication: BACK PAIN
  24. NORSPAN [Concomitant]
     Active Substance: BUPRENORPHINE
     Indication: ARTHRALGIA
  25. DUODOPA [Suspect]
     Active Substance: CARBIDOPA\LEVODOPA
     Dosage: MD 6,0ML; CRD 2,5 ML/H; ED 1,0 ML (DOSAGE DECREASED)
     Route: 050
     Dates: start: 2018, end: 2018
  26. AKINETON [Concomitant]
     Active Substance: BIPERIDEN HYDROCHLORIDE
     Indication: DYSKINESIA
     Dates: start: 201804
  27. ADENURIC [Concomitant]
     Active Substance: FEBUXOSTAT
     Indication: PRODUCT USED FOR UNKNOWN INDICATION
  28. DUODOPA [Suspect]
     Active Substance: CARBIDOPA\LEVODOPA
     Indication: PARKINSONISM
     Route: 050
     Dates: start: 20180220, end: 20180220
  29. MACROGOL [Concomitant]
     Active Substance: POLYETHYLENE GLYCOLS
     Indication: PRODUCT USED FOR UNKNOWN INDICATION
  30. NOVALGIN (METAMIZOLE SODIUM) [Concomitant]
     Active Substance: METAMIZOLE SODIUM
     Indication: ARTHRALGIA
     Dates: start: 2018
  31. XIPAMID [Concomitant]
     Active Substance: XIPAMIDE
     Indication: PRODUCT USED FOR UNKNOWN INDICATION
     Dates: start: 2018
  32. METRONIDAZOLE. [Concomitant]
     Active Substance: METRONIDAZOLE
     Indication: PRODUCT USED FOR UNKNOWN INDICATION
  33. VITAMIN D3 [Concomitant]
     Active Substance: CHOLECALCIFEROL
     Indication: PRODUCT USED FOR UNKNOWN INDICATION
  34. RANITIDINE. [Concomitant]
     Active Substance: RANITIDINE
     Indication: PRODUCT USED FOR UNKNOWN INDICATION
  35. BUPRENORPHINE. [Concomitant]
     Active Substance: BUPRENORPHINE
     Indication: PRODUCT USED FOR UNKNOWN INDICATION

REACTIONS (60)
  - Gastrointestinal haemorrhage [Unknown]
  - Haemoglobin decreased [Unknown]
  - Osteoarthritis [Unknown]
  - Melaena [Unknown]
  - Duodenal ulcer [Unknown]
  - Parkinson^s disease [Unknown]
  - Lower gastrointestinal haemorrhage [Unknown]
  - Cerebral ischaemia [Unknown]
  - Tachyarrhythmia [Unknown]
  - Bronchial obstruction [Recovering/Resolving]
  - Stoma site infection [Unknown]
  - Stoma site discharge [Unknown]
  - Ulcer [Unknown]
  - Fungal sepsis [Recovering/Resolving]
  - Somnolence [Recovering/Resolving]
  - Respiratory failure [Recovering/Resolving]
  - Cardiovascular disorder [Recovering/Resolving]
  - Pneumonia aspiration [Not Recovered/Not Resolved]
  - Multimorbidity [Unknown]
  - Infection [Unknown]
  - Pleural effusion [Unknown]
  - Arthralgia [Unknown]
  - Hypokinesia [Not Recovered/Not Resolved]
  - Injection site pain [Unknown]
  - Peripheral artery stenosis [Unknown]
  - Oxygen saturation decreased [Recovering/Resolving]
  - General physical health deterioration [Recovering/Resolving]
  - Gastrointestinal hypomotility [Unknown]
  - Extrasystoles [Unknown]
  - Inflammatory bowel disease [Unknown]
  - Stoma site erythema [Unknown]
  - Septic shock [Recovering/Resolving]
  - Pneumonia [Recovering/Resolving]
  - Liver disorder [Unknown]
  - Inflammatory marker increased [Unknown]
  - Pneumonia [Fatal]
  - Toxicity to various agents [Unknown]
  - Haemoglobin decreased [Unknown]
  - Enteritis [Unknown]
  - Staphylococcal infection [Unknown]
  - Lung infiltration [Unknown]
  - Inflammation of wound [Unknown]
  - Stoma site pain [Unknown]
  - Faecaloma [Unknown]
  - Gastrointestinal disorder [Unknown]
  - Gallbladder mucocoele [Unknown]
  - Troponin increased [Unknown]
  - Coronary artery disease [Unknown]
  - Limb deformity [Unknown]
  - Puncture site infection [Unknown]
  - Disturbance in attention [Recovering/Resolving]
  - Intestinal haemorrhage [Recovered/Resolved]
  - Mass [Unknown]
  - Proctitis [Unknown]
  - Back pain [Unknown]
  - Cystitis [Not Recovered/Not Resolved]
  - Flatulence [Unknown]
  - Stoma site ulcer [Unknown]
  - Stoma site discharge [Unknown]
  - Haemorrhagic disorder [Unknown]

NARRATIVE: CASE EVENT DATE: 2018
